FAERS Safety Report 8271465-2 (Version None)
Quarter: 2012Q1

REPORT INFORMATION
  Report Type: 
  Country: None (occurrence: None)
  Receive Date: 20120308
  Receipt Date: 20111201
  Transmission Date: 20120608
  Serious: No
  Sender: FDA-Public Use
  Company Number: PHEH2011US010663

PATIENT
  Sex: Male

DRUGS (1)
  1. FANAPT [Suspect]

REACTIONS (1)
  - OEDEMA PERIPHERAL [None]
